FAERS Safety Report 15825110 (Version 1)
Quarter: 2019Q1

REPORT INFORMATION
  Report Type: Spontaneous
  Country: US (occurrence: US)
  Receive Date: 20190114
  Receipt Date: 20190114
  Transmission Date: 20190417
  Serious: No
  Sender: FDA-Public Use
  Company Number: None

PATIENT
  Age: 29 Year
  Sex: Female
  Weight: 105.75 kg

DRUGS (3)
  1. PRENATALS [Concomitant]
  2. CIMZIA [Suspect]
     Active Substance: CERTOLIZUMAB PEGOL
     Indication: RHEUMATOID ARTHRITIS
     Dosage: ?          QUANTITY:2 INJECTION(S);OTHER FREQUENCY:STARTER KIT, MULTI;?
     Route: 058
     Dates: start: 20190104, end: 20190113
  3. ALLEGRA-D [Concomitant]
     Active Substance: FEXOFENADINE\PSEUDOEPHEDRINE

REACTIONS (4)
  - Injection site swelling [None]
  - Injection site erythema [None]
  - Injection site warmth [None]
  - Injection site pruritus [None]

NARRATIVE: CASE EVENT DATE: 20190113
